FAERS Safety Report 17240174 (Version 1)
Quarter: 2020Q1

REPORT INFORMATION
  Report Type: Spontaneous
  Country: US (occurrence: US)
  Receive Date: 20200107
  Receipt Date: 20200107
  Transmission Date: 20200409
  Serious: No
  Sender: FDA-Public Use
  Company Number: US-LUPIN PHARMACEUTICALS INC.-2019-01781

PATIENT
  Age: 97 Year
  Sex: Male
  Weight: 52.15 kg

DRUGS (2)
  1. CEFDINIR FOR ORAL SUSPENSION USP 250 MG/5 ML [Suspect]
     Active Substance: CEFDINIR
     Indication: ANTIBIOTIC THERAPY
     Dosage: 250 MILLIGRAM, BID
     Route: 048
     Dates: start: 20190309, end: 20190313
  2. CEFDINIR FOR ORAL SUSPENSION USP 250 MG/5 ML [Suspect]
     Active Substance: CEFDINIR
     Dosage: 250 MILLIGRAM, BID
     Route: 048
     Dates: start: 20190314

REACTIONS (3)
  - Product storage error [Unknown]
  - Therapeutic product effect decreased [Unknown]
  - General physical health deterioration [Recovered/Resolved]

NARRATIVE: CASE EVENT DATE: 20190309
